FAERS Safety Report 8951214 (Version 1)
Quarter: 2012Q4

REPORT INFORMATION
  Report Type: 
  Country: IT (occurrence: IT)
  Receive Date: 20121207
  Receipt Date: 20121207
  Transmission Date: 20130627
  Serious: Yes (Hospitalization)
  Sender: FDA-Public Use
  Company Number: IT-PFIZER INC-2012307108

PATIENT
  Age: 33 Year
  Sex: Female

DRUGS (5)
  1. LYRICA [Suspect]
     Indication: SUICIDE ATTEMPT
     Dosage: 675 mg, single
     Route: 048
     Dates: start: 20121106, end: 20121106
  2. ESOPRAL [Suspect]
     Indication: SUICIDE ATTEMPT
     Dosage: 80 mg, single
     Route: 048
     Dates: start: 20121106
  3. VALIUM [Suspect]
     Indication: SUICIDE ATTEMPT
     Dosage: 200 mg, single
     Route: 048
     Dates: start: 20121106, end: 20121106
  4. SERTRALINE HYDROCHLORIDE [Concomitant]
     Indication: DEPRESSION
     Dosage: 100 mg, UNK
     Route: 048
  5. SEROQUEL [Concomitant]
     Indication: DEPRESSION
     Dosage: 200 mg, UNK
     Route: 048

REACTIONS (3)
  - Toxicity to various agents [Recovering/Resolving]
  - Psychomotor hyperactivity [Recovering/Resolving]
  - Slow response to stimuli [Recovering/Resolving]
